FAERS Safety Report 9129219 (Version 2)
Quarter: 2013Q1

REPORT INFORMATION
  Report Type: Spontaneous
  Country: US (occurrence: US)
  Receive Date: 20130125
  Receipt Date: 20130326
  Transmission Date: 20140127
  Serious: No
  Sender: FDA-Public Use
  Company Number: US-ASTRAZENECA-2012SE49854

PATIENT
  Age: 80 Year
  Sex: Male

DRUGS (5)
  1. ATACAND [Suspect]
     Route: 048
  2. METOPROLOL [Suspect]
     Route: 048
  3. CRESTOR [Suspect]
     Indication: BLOOD CHOLESTEROL INCREASED
     Route: 048
  4. CRESTOR [Suspect]
     Indication: BLOOD PRESSURE ABNORMAL
     Route: 048
  5. TOPROL [Concomitant]

REACTIONS (7)
  - Bronchitis [Unknown]
  - Abasia [Unknown]
  - Influenza [Unknown]
  - Mental disorder [Unknown]
  - Asthenia [Unknown]
  - Cough [Unknown]
  - Drug ineffective [Unknown]
